FAERS Safety Report 7743274-1 (Version None)
Quarter: 2011Q3

REPORT INFORMATION
  Report Type: 
  Country: None (occurrence: None)
  Receive Date: 20110912
  Receipt Date: 20110902
  Transmission Date: 20111222
  Serious: Yes (Other)
  Sender: FDA-Public Use
  Company Number: FR-EISAI INC-E3810-04917-SPO-FR

PATIENT
  Sex: Female

DRUGS (7)
  1. EBASTINE [Suspect]
     Dosage: UNKNOWN
  2. DEXFENFLURAMINE HYDROCHLORIDE [Suspect]
     Dosage: UNKNOWN
  3. LEVOTHYROXINE SODIUM [Suspect]
     Dosage: UNKNOWN
  4. SERETIDE [Suspect]
     Indication: ASTHMA
     Dosage: UNKNOWN
  5. PROZAC [Suspect]
     Dosage: UNKNOWN
  6. RABEPRAZOLE SODIUM [Suspect]
     Indication: ILL-DEFINED DISORDER
     Dosage: UNKNOWN
     Route: 048
  7. BENFLUOREX HYDROCHLORIDE [Suspect]
     Indication: OVERWEIGHT
     Dosage: UNKNOWN
     Route: 048

REACTIONS (3)
  - DYSPNOEA EXERTIONAL [None]
  - MITRAL VALVE DISEASE [None]
  - PULMONARY HYPERTENSION [None]
